FAERS Safety Report 20146997 (Version 2)
Quarter: 2021Q4

REPORT INFORMATION
  Report Type: Spontaneous
  Country: CN (occurrence: CN)
  Receive Date: 20211203
  Receipt Date: 20211215
  Transmission Date: 20220303
  Serious: No
  Sender: FDA-Public Use
  Company Number: CN-SA-SAC20211116000033

PATIENT
  Age: 66 Year
  Sex: Male
  Weight: 63 kg

DRUGS (2)
  1. MOZOBIL [Suspect]
     Active Substance: PLERIXAFOR
     Indication: Lymphoma
     Dosage: THE DOSAGE OF MOZOBIL (PLERIXAFOR INJECTION) WAS 1.0MG (1.2MG IN TOTAL) AND THE VOLUME OF MOZOBIL (P
     Dates: start: 20211107
  2. GRANULOCYTE COLONY-STIMULATING FACTOR NOS [Concomitant]
     Active Substance: GRANULOCYTE COLONY-STIMULATING FACTOR NOS
     Dosage: 600 UG, QD (MORNING OF THURSDAY, FRIDAY, SATURDAY AND SUNDAY)
     Dates: start: 20211104, end: 20211107

REACTIONS (5)
  - Fatigue [Recovered/Resolved]
  - Off label use [Unknown]
  - Drug ineffective [Unknown]
  - Unevaluable event [Unknown]
  - Therapeutic response decreased [Unknown]

NARRATIVE: CASE EVENT DATE: 20211101
